FAERS Safety Report 23359231 (Version 2)
Quarter: 2024Q1

REPORT INFORMATION
  Report Type: Spontaneous
  Country: US (occurrence: US)
  Receive Date: 20240102
  Receipt Date: 20240316
  Transmission Date: 20240409
  Serious: No
  Sender: FDA-Public Use
  Company Number: US-002147023-NVSC2023US276349

PATIENT
  Age: 88 Year
  Sex: Female

DRUGS (1)
  1. BEOVU [Suspect]
     Active Substance: BROLUCIZUMAB-DBLL
     Indication: Neovascular age-related macular degeneration
     Dosage: UNK, QD (Q 10-15 DAYS)
     Route: 031
     Dates: start: 20231114, end: 20231114

REACTIONS (2)
  - Visual impairment [Not Recovered/Not Resolved]
  - Vitreous floaters [Recovered/Resolved]
